FAERS Safety Report 7792543-8 (Version None)
Quarter: 2011Q3

REPORT INFORMATION
  Report Type: 
  Country: None (occurrence: None)
  Receive Date: 20110930
  Receipt Date: 20110930
  Transmission Date: 20111222
  Serious: Yes (Other)
  Sender: FDA-Public Use
  Company Number: None

PATIENT
  Age: 68 Year
  Sex: Female
  Weight: 79.3795 kg

DRUGS (1)
  1. SIMVASTATIN [Suspect]
     Indication: BLOOD CHOLESTEROL INCREASED
     Dosage: 20 MG. 1 A DAY
     Dates: start: 20110817, end: 20110914

REACTIONS (3)
  - GAIT DISTURBANCE [None]
  - PAIN [None]
  - RASH ERYTHEMATOUS [None]
